FAERS Safety Report 7435333-8 (Version None)
Quarter: 2011Q2

REPORT INFORMATION
  Report Type: 
  Country: None (occurrence: None)
  Receive Date: 20110425
  Receipt Date: 20110420
  Transmission Date: 20111010
  Serious: Yes (Death, Hospitalization)
  Sender: FDA-Public Use
  Company Number: A0897832A

PATIENT
  Age: 72 Year
  Sex: Male

DRUGS (6)
  1. GLIPIZIDE [Concomitant]
  2. METOPROLOL [Concomitant]
  3. NORVASC [Concomitant]
     Dates: end: 20070101
  4. AVANDIA [Suspect]
     Indication: DIABETES MELLITUS
     Dosage: 4MG PER DAY
     Route: 048
  5. COUMADIN [Concomitant]
  6. LASIX [Concomitant]

REACTIONS (7)
  - CEREBRAL ARTERY OCCLUSION [None]
  - CEREBROVASCULAR ACCIDENT [None]
  - CARDIOMYOPATHY [None]
  - CEREBRAL INFARCTION [None]
  - CARDIAC FAILURE CONGESTIVE [None]
  - DEATH [None]
  - CARDIOVASCULAR DISORDER [None]
